FAERS Safety Report 8654717 (Version 2)
Quarter: 2012Q4

REPORT INFORMATION
  Report Type: 
  Country: US (occurrence: US)
  Receive Date: 20120709
  Receipt Date: 20121029
  Transmission Date: 20130627
  Serious: Yes (Hospitalization, Other)
  Sender: FDA-Public Use
  Company Number: US-PFIZER INC-2012161310

PATIENT
  Sex: Male

DRUGS (1)
  1. CHANTIX [Suspect]
     Indication: SMOKING CESSATION THERAPY
     Dosage: UNK
     Dates: start: 200703

REACTIONS (7)
  - Suicide attempt [Unknown]
  - Cerebrovascular accident [Unknown]
  - Delirium [Unknown]
  - Depression [Unknown]
  - Mental disorder [Unknown]
  - Nightmare [Unknown]
  - Anxiety [Unknown]
